FAERS Safety Report 19576857 (Version 1)
Quarter: 2021Q3

REPORT INFORMATION
  Report Type: Spontaneous
  Country: JP (occurrence: JP)
  Receive Date: 20210719
  Receipt Date: 20210719
  Transmission Date: 20211014
  Serious: Yes (Death, Other)
  Sender: FDA-Public Use
  Company Number: JP-ASTELLAS-2021US026230

PATIENT
  Age: 9 Decade
  Weight: 38 kg

DRUGS (4)
  1. AMPHOTERICIN B, LIPOSOME [Suspect]
     Active Substance: AMPHOTERICIN B
     Indication: FUNGAL INFECTION
     Dosage: 100 MG, (DILUTED WITH 250 ML OF GLUCOSE SOLUTION TO ADMINISTER AT 2.63 MG/KG) QD
     Route: 041
     Dates: start: 20210611, end: 20210622
  2. FUROSEMIDE. [Concomitant]
     Active Substance: FUROSEMIDE
     Route: 065
  3. FUROSEMIDE. [Concomitant]
     Active Substance: FUROSEMIDE
     Route: 065
  4. FUROSEMIDE. [Concomitant]
     Active Substance: FUROSEMIDE
     Indication: PRODUCT USED FOR UNKNOWN INDICATION
     Route: 065

REACTIONS (2)
  - Gastric cancer [Fatal]
  - Ascites [Fatal]

NARRATIVE: CASE EVENT DATE: 20210618
